FAERS Safety Report 5506108-1 (Version None)
Quarter: 2007Q4

REPORT INFORMATION
  Report Type: 
  Country: None (occurrence: None)
  Receive Date: 20071105
  Receipt Date: 20071031
  Transmission Date: 20080405
  Serious: Yes (Other)
  Sender: FDA-Public Use
  Company Number: JP-BRISTOL-MYERS SQUIBB COMPANY-13967476

PATIENT
  Age: 58 Year
  Sex: Male

DRUGS (4)
  1. VEPESID [Suspect]
     Route: 042
  2. NOVANTRONE [Concomitant]
     Route: 042
  3. DAUNOMYCIN [Concomitant]
     Route: 042
  4. ACLACINON [Concomitant]
     Route: 042

REACTIONS (1)
  - CHRONIC MYELOMONOCYTIC LEUKAEMIA [None]
